FAERS Safety Report 19481475 (Version 1)
Quarter: 2021Q3

REPORT INFORMATION
  Report Type: Spontaneous
  Country: US (occurrence: US)
  Receive Date: 20210701
  Receipt Date: 20210701
  Transmission Date: 20211014
  Serious: No
  Sender: FDA-Public Use
  Company Number: US-BAYER-2021-167436

PATIENT
  Sex: Female
  Weight: 59.86 kg

DRUGS (3)
  1. CONCERTA [Concomitant]
     Active Substance: METHYLPHENIDATE HYDROCHLORIDE
     Dosage: 54 MG
  2. SKYLA [Suspect]
     Active Substance: LEVONORGESTREL
     Dosage: 14 ?G PER DAY CONITNUOUSLY
     Route: 015
     Dates: start: 202104, end: 20210512
  3. ZOLOFT [Concomitant]
     Active Substance: SERTRALINE HYDROCHLORIDE
     Dosage: 50 MG

REACTIONS (3)
  - Vaginal haemorrhage [None]
  - Night sweats [None]
  - Acne cystic [None]

NARRATIVE: CASE EVENT DATE: 2021
